FAERS Safety Report 18042663 (Version 2)
Quarter: 2021Q2

REPORT INFORMATION
  Report Type: Spontaneous
  Country: JP (occurrence: JP)
  Receive Date: 20200720
  Receipt Date: 20210602
  Transmission Date: 20210717
  Serious: Yes (Hospitalization, Other)
  Sender: FDA-Public Use
  Company Number: US-ELI_LILLY_AND_COMPANY-JP202007006973

PATIENT
  Age: 69 Year
  Sex: Female
  Weight: 39.1 kg

DRUGS (19)
  1. OPSUMIT [Concomitant]
     Active Substance: MACITENTAN
     Indication: PULMONARY ARTERIAL HYPERTENSION
     Dosage: 10 MG, DAILY
  2. EDIROL [Concomitant]
     Active Substance: ELDECALCITOL
     Indication: OSTEOPOROSIS
     Dosage: 0.75 UG
  3. TOCOPHEROL [Concomitant]
     Active Substance: TOCOPHEROL
     Indication: RAYNAUD^S PHENOMENON
     Dosage: 600 MG
  4. UPTRAVI [Suspect]
     Active Substance: SELEXIPAG
     Dosage: 1 MG, BID
     Route: 048
     Dates: start: 20200117
  5. OXATOMIDE [Concomitant]
     Active Substance: OXATOMIDE
     Indication: MORPHOEA
     Dosage: 30 MG
  6. LOPEMIN [LOPERAMIDE HYDROCHLORIDE] [Concomitant]
     Active Substance: LOPERAMIDE HYDROCHLORIDE
     Indication: DIARRHOEA
     Dosage: 1 MG, DAILY
  7. NEXIUM MUPS [ESOMEPRAZOLE MAGNESIUM] [Concomitant]
     Active Substance: ESOMEPRAZOLE MAGNESIUM
     Indication: PROPHYLAXIS
     Dosage: 20 MG
     Dates: start: 20190927, end: 20200315
  8. UPTRAVI [Suspect]
     Active Substance: SELEXIPAG
     Dosage: 0.8 MG, BID
     Route: 048
     Dates: start: 20190607, end: 20200116
  9. PRAVASTATIN NA [Concomitant]
     Active Substance: PRAVASTATIN SODIUM
     Indication: DYSLIPIDAEMIA
     Dosage: 10 MG
  10. UPTRAVI [Suspect]
     Active Substance: SELEXIPAG
     Indication: PULMONARY ARTERIAL HYPERTENSION
     Dosage: 0.2 MG, BID
     Route: 048
     Dates: start: 20180310, end: 20180510
  11. DIART [Concomitant]
     Active Substance: AZOSEMIDE
     Indication: CARDIAC FAILURE
     Dosage: 30 MG
  12. COCARL [Concomitant]
     Active Substance: ACETAMINOPHEN
     Dosage: 800 MG
  13. UPTRAVI [Suspect]
     Active Substance: SELEXIPAG
     Dosage: 0.6 MG, BID
     Route: 048
     Dates: start: 20190215, end: 20190606
  14. URSO [Concomitant]
     Active Substance: URSODIOL
     Indication: HEPATIC CYST
     Dosage: 600 MG
  15. ADCIRCA [Suspect]
     Active Substance: TADALAFIL
     Indication: PULMONARY ARTERIAL HYPERTENSION
     Dosage: 40 MG, DAILY
     Route: 065
  16. UPTRAVI [Suspect]
     Active Substance: SELEXIPAG
     Dosage: 0.4 MG, BID
     Route: 048
     Dates: start: 20180511, end: 20190214
  17. DIART [Concomitant]
     Active Substance: AZOSEMIDE
     Dosage: 15 MG, DAILY
  18. COCARL [Concomitant]
     Active Substance: ACETAMINOPHEN
     Indication: HEADACHE
     Dosage: UNK
  19. TAKECAB [Concomitant]
     Active Substance: VONOPRAZAN FUMARATE
     Indication: PROPHYLAXIS
     Dosage: 20 MG
     Dates: start: 20200316

REACTIONS (9)
  - Headache [Recovering/Resolving]
  - Diarrhoea [Not Recovered/Not Resolved]
  - Arthralgia [Recovering/Resolving]
  - Atrial fibrillation [Recovered/Resolved]
  - Iron deficiency anaemia [Recovered/Resolved]
  - Abdominal pain [Recovering/Resolving]
  - Headache [Recovering/Resolving]
  - Headache [Not Recovered/Not Resolved]
  - Diarrhoea [Recovering/Resolving]

NARRATIVE: CASE EVENT DATE: 20180706
